FAERS Safety Report 19665987 (Version 1)
Quarter: 2021Q3

REPORT INFORMATION
  Report Type: Spontaneous
  Country: US (occurrence: US)
  Receive Date: 20210806
  Receipt Date: 20210806
  Transmission Date: 20211014
  Serious: Yes (Hospitalization)
  Sender: FDA-Public Use
  Company Number: None

PATIENT
  Age: 63 Year
  Sex: Female
  Weight: 111.8 kg

DRUGS (2)
  1. CYTARABINE. [Suspect]
     Active Substance: CYTARABINE
     Dates: end: 20210716
  2. DAUNORUBICIN [Suspect]
     Active Substance: DAUNORUBICIN
     Dates: end: 20210604

REACTIONS (10)
  - Dyspnoea [None]
  - Back pain [None]
  - Aspiration [None]
  - SARS-CoV-2 test positive [None]
  - Chest pain [None]
  - Headache [None]
  - White blood cell count decreased [None]
  - Fatigue [None]
  - Pyrexia [None]
  - Atelectasis [None]

NARRATIVE: CASE EVENT DATE: 20210802
